FAERS Safety Report 5404116-2 (Version None)
Quarter: 2007Q3

REPORT INFORMATION
  Report Type: 
  Country: None (occurrence: None)
  Receive Date: 20070802
  Receipt Date: 20070731
  Transmission Date: 20080115
  Serious: Yes (Other)
  Sender: FDA-Public Use
  Company Number: US-JNJFOC-20070800215

PATIENT
  Age: 42 Year
  Sex: Female
  Weight: 145.15 kg

DRUGS (7)
  1. MOTRIN [Suspect]
     Indication: PAIN
     Dosage: FOR YEARS
  2. TYLENOL COLD HEAD CONGESTION DAYTIME COOL BURST [Suspect]
     Indication: NASOPHARYNGITIS
  3. NEXIUM [Concomitant]
     Indication: GASTROOESOPHAGEAL REFLUX DISEASE
  4. FERROUS SULFATE [Concomitant]
     Indication: ROUTINE HEALTH MAINTENANCE
  5. DETROL LA [Concomitant]
     Indication: BLADDER DISORDER
  6. HYDROCHLOROTHIAZIDE [Concomitant]
     Indication: DIURETIC THERAPY
  7. VOLTAREN [Concomitant]
     Indication: BLOOD PRESSURE

REACTIONS (5)
  - CHEST PAIN [None]
  - CYANOSIS [None]
  - DYSARTHRIA [None]
  - EYE SWELLING [None]
  - PHARYNGEAL OEDEMA [None]
